FAERS Safety Report 10299388 (Version 2)
Quarter: 2014Q3

REPORT INFORMATION
  Report Type: Report from Study
  Country: CA (occurrence: CA)
  Receive Date: 20140711
  Receipt Date: 20140711
  Transmission Date: 20150326
  Serious: Yes (Other)
  Sender: FDA-Public Use
  Company Number: CA-BRISTOL-MYERS SQUIBB COMPANY-20776613

PATIENT
  Age: 58 Year
  Sex: Female

DRUGS (11)
  1. HYDROCHLOROTHIAZIDE. [Concomitant]
     Active Substance: HYDROCHLOROTHIAZIDE
  2. METHOTREXATE [Concomitant]
     Active Substance: METHOTREXATE
  3. PANTOLOC [Concomitant]
     Active Substance: PANTOPRAZOLE SODIUM
  4. CORTISONE [Concomitant]
     Active Substance: CORTISONE\HYDROCORTISONE
  5. FOSAMAX [Concomitant]
     Active Substance: ALENDRONATE SODIUM
  6. LASIX [Concomitant]
     Active Substance: FUROSEMIDE
  7. ORENCIA [Suspect]
     Active Substance: ABATACEPT
     Indication: RHEUMATOID ARTHRITIS
     Dosage: 1 DF-750 UNITS
     Dates: start: 20090901
  8. FOLIC ACID. [Concomitant]
     Active Substance: FOLIC ACID
  9. ELTROXIN [Concomitant]
     Active Substance: LEVOTHYROXINE
  10. ADALAT [Concomitant]
     Active Substance: NIFEDIPINE
  11. VOLTAREN [Concomitant]
     Active Substance: DICLOFENAC SODIUM

REACTIONS (3)
  - Weight decreased [Unknown]
  - Incisional drainage [Unknown]
  - Arthropathy [Unknown]
